FAERS Safety Report 8257613-9 (Version None)
Quarter: 2012Q2

REPORT INFORMATION
  Report Type: 
  Country: None (occurrence: None)
  Receive Date: 20120403
  Receipt Date: 20120328
  Transmission Date: 20120825
  Serious: Yes (Hospitalization, Other)
  Sender: FDA-Public Use
  Company Number: JP-PFIZER INC-2012078884

PATIENT

DRUGS (2)
  1. ASACOL [Concomitant]
     Dosage: SUSPENSION OF CRUSHED TABLETS
  2. SULFASALAZINE [Suspect]
     Dosage: 12 TABLETS AS SUSPENSION OF CRUSHED TABLETS

REACTIONS (2)
  - METASTASES TO CENTRAL NERVOUS SYSTEM [None]
  - LARGE INTESTINE CARCINOMA [None]
